FAERS Safety Report 11628352 (Version 1)
Quarter: 2015Q4

REPORT INFORMATION
  Report Type: Spontaneous
  Country: VN (occurrence: VN)
  Receive Date: 20151014
  Receipt Date: 20151014
  Transmission Date: 20160304
  Serious: Yes (Hospitalization)
  Sender: FDA-Public Use
  Company Number: VN-ROCHE-1644937

PATIENT
  Age: 51 Year
  Sex: Male

DRUGS (5)
  1. XELODA [Suspect]
     Active Substance: CAPECITABINE
     Indication: COLON CANCER METASTATIC
     Dosage: DAY 1-14 PER CYCLE OF 21 DAYS  (ONGOING)
     Route: 048
  2. AVASTIN [Suspect]
     Active Substance: BEVACIZUMAB
     Indication: COLON CANCER METASTATIC
     Dosage: D1  PER CYCLE OF 21 DAYS (8 CYCLES- COMPLETED)
     Route: 041
     Dates: start: 201503
  3. AVASTIN [Suspect]
     Active Substance: BEVACIZUMAB
     Indication: COLON CANCER METASTATIC
     Dosage: D1  PER CYCLE OF 21 DAYS  (ONGING)
     Route: 041
  4. XELODA [Suspect]
     Active Substance: CAPECITABINE
     Indication: COLON CANCER METASTATIC
     Dosage: DAY 1-14 PER CYCLE OF 21 DAYS (8 CYCLES-COMPLETED)
     Route: 048
     Dates: start: 201503
  5. OXALIPLATIN. [Suspect]
     Active Substance: OXALIPLATIN
     Indication: COLON CANCER METASTATIC
     Dosage: DAY 1-14 PER CYCLE OF 21 DAYS (8 CYCLES-COMPLETED)
     Route: 065

REACTIONS (1)
  - Transaminases increased [Unknown]

NARRATIVE: CASE EVENT DATE: 201508
